FAERS Safety Report 23376615 (Version 2)
Quarter: 2025Q1

REPORT INFORMATION
  Report Type: Spontaneous
  Country: US (occurrence: US)
  Receive Date: 20240108
  Receipt Date: 20250127
  Transmission Date: 20250408
  Serious: Yes (Other)
  Sender: CHATTEM
  Company Number: US-OPELLA-2024OHG000282

PATIENT
  Age: 43 Year
  Sex: Male

DRUGS (1)
  1. GOLD BOND ORIGINAL STRENGTH [Suspect]
     Active Substance: MENTHOL
     Indication: Product used for unknown indication
     Route: 065

REACTIONS (7)
  - Peritoneal mesothelioma malignant [Unknown]
  - Epithelioid mesothelioma [Unknown]
  - Atrial fibrillation [Unknown]
  - Gynaecomastia [Unknown]
  - Duodenitis [Unknown]
  - Gastritis [Unknown]
  - Exposure to chemical pollution [Unknown]

NARRATIVE: CASE EVENT DATE: 20190118
